FAERS Safety Report 16006562 (Version 1)
Quarter: 2019Q1

REPORT INFORMATION
  Report Type: Report from Study
  Country: CA (occurrence: CA)
  Receive Date: 20190225
  Receipt Date: 20190225
  Transmission Date: 20190418
  Serious: Yes (Death, Other)
  Sender: FDA-Public Use
  Company Number: CA-BIOGEN-2019BI00700656

PATIENT
  Age: 57 Year
  Sex: Female

DRUGS (1)
  1. TECFIDERA [Suspect]
     Active Substance: DIMETHYL FUMARATE
     Indication: MULTIPLE SCLEROSIS
     Dosage: TITRATION
     Route: 048
     Dates: start: 20181119

REACTIONS (3)
  - Calculus urinary [Unknown]
  - Septic shock [Fatal]
  - Urosepsis [Unknown]

NARRATIVE: CASE EVENT DATE: 20190215
